FAERS Safety Report 9514730 (Version 2)
Quarter: 2013Q4

REPORT INFORMATION
  Report Type: Spontaneous
  Country: US (occurrence: US)
  Receive Date: 20130911
  Receipt Date: 20131025
  Transmission Date: 20140711
  Serious: No
  Sender: FDA-Public Use
  Company Number: US-009507513-1309USA004337

PATIENT
  Age: 39 Year
  Sex: Female

DRUGS (8)
  1. SAPHRIS [Suspect]
     Indication: ANXIETY
     Dosage: 5 MG, QD
     Route: 048
     Dates: start: 20130820, end: 20130906
  2. TEGRETOL [Concomitant]
     Dosage: 200 MG, BID
  3. ATIVAN [Concomitant]
     Dosage: 1 MG, PRN
     Route: 048
  4. TRANXENE [Concomitant]
     Dosage: 75 MG, QAM
     Route: 048
  5. TRANXENE [Concomitant]
     Dosage: 75 MG, HS
     Route: 048
  6. EFFEXOR XR [Concomitant]
     Dosage: 75 MG, QAM
  7. ZOLOFT [Concomitant]
     Dosage: 100 MG, HS
     Route: 048
  8. TRAZODONE HYDROCHLORIDE [Concomitant]
     Dosage: 100 MG, HS

REACTIONS (4)
  - Tachycardia [Recovered/Resolved]
  - Inappropriate schedule of drug administration [Unknown]
  - Underdose [Unknown]
  - Incorrect route of drug administration [Unknown]
